FAERS Safety Report 23743951 (Version 2)
Quarter: 2024Q2

REPORT INFORMATION
  Report Type: Spontaneous
  Country: US (occurrence: US)
  Receive Date: 20240415
  Receipt Date: 20240603
  Transmission Date: 20240716
  Serious: No
  Sender: FDA-Public Use
  Company Number: US-SA-SAC20240405001065

PATIENT
  Age: 26 Year
  Sex: Female

DRUGS (1)
  1. DUPIXENT [Suspect]
     Active Substance: DUPILUMAB
     Indication: Dermatitis atopic
     Dosage: 300 MG, QOW
     Route: 058
     Dates: start: 2017

REACTIONS (6)
  - Throat irritation [Recovered/Resolved]
  - Oral discomfort [Recovered/Resolved]
  - Feeling abnormal [Recovered/Resolved]
  - Rash [Unknown]
  - Tongue discomfort [Unknown]
  - Eye disorder [Unknown]

NARRATIVE: CASE EVENT DATE: 20240301
